FAERS Safety Report 6865713-0 (Version None)
Quarter: 2010Q3

REPORT INFORMATION
  Report Type: 
  Country: None (occurrence: None)
  Receive Date: 20100721
  Receipt Date: 20080502
  Transmission Date: 20110219
  Serious: No
  Sender: FDA-Public Use
  Company Number: US-PFIZER INC-2008038719

PATIENT
  Sex: Female

DRUGS (1)
  1. CHANTIX [Suspect]

REACTIONS (5)
  - ASTHENIA [None]
  - DYSPHONIA [None]
  - PERFORMANCE STATUS DECREASED [None]
  - SEDATION [None]
  - SOMNOLENCE [None]
